FAERS Safety Report 4675570-9 (Version None)
Quarter: 2005Q2

REPORT INFORMATION
  Report Type: 
  Country: None (occurrence: None)
  Receive Date: 20050527
  Receipt Date: 20050414
  Transmission Date: 20051028
  Serious: Yes (Other)
  Sender: FDA-Public Use
  Company Number: US-BRISTOL-MYERS SQUIBB COMPANY-12933859

PATIENT
  Sex: Male

DRUGS (12)
  1. ABILIFY [Suspect]
  2. INSULIN [Concomitant]
  3. ZOCOR [Concomitant]
     Dosage: 20 MG QHS
  4. MULTI-VITAMIN [Concomitant]
  5. DOCUSATE [Concomitant]
  6. NORVASC [Concomitant]
  7. ENALAPRIL MALEATE [Concomitant]
  8. VITAMIN E [Concomitant]
  9. COREG [Concomitant]
  10. ZOLOFT [Concomitant]
     Dosage: 150 MG QHS
  11. FIBERCON [Concomitant]
     Dosage: Q AM
  12. SENNA [Concomitant]
     Dosage: Q AM

REACTIONS (1)
  - ATRIOVENTRICULAR BLOCK [None]
